FAERS Safety Report 14884665 (Version 2)
Quarter: 2018Q2

REPORT INFORMATION
  Report Type: Report from Study
  Country: BR (occurrence: BR)
  Receive Date: 20180511
  Receipt Date: 20180522
  Transmission Date: 20180711
  Serious: Yes (Congenital Anomaly, Other)
  Sender: FDA-Public Use
  Company Number: BR-MYLANLABS-2018M1030976

PATIENT
  Sex: Female

DRUGS (2)
  1. COMBIVIR [Suspect]
     Active Substance: LAMIVUDINE\ZIDOVUDINE
     Indication: HIV INFECTION
     Dosage: 900 MG, QD
     Route: 064
     Dates: start: 20171030, end: 20180301
  2. EFAVIRENZ. [Suspect]
     Active Substance: EFAVIRENZ
     Indication: HIV INFECTION
     Dosage: 600 MG, QD
     Route: 064
     Dates: start: 20171030, end: 20180301

REACTIONS (2)
  - Genitalia external ambiguous [Unknown]
  - Foetal exposure during pregnancy [Recovered/Resolved]
